FAERS Safety Report 20857290 (Version 4)
Quarter: 2025Q2

REPORT INFORMATION
  Report Type: Spontaneous
  Country: US (occurrence: US)
  Receive Date: 20220520
  Receipt Date: 20250523
  Transmission Date: 20250717
  Serious: No
  Sender: SANOFI AVENTIS
  Company Number: US-SA-SAC20220519000078

PATIENT
  Age: 58 Year
  Sex: Female

DRUGS (12)
  1. DUPIXENT [Suspect]
     Active Substance: DUPILUMAB
     Indication: Dermatitis atopic
     Dosage: 300 MG, QOW
     Route: 058
     Dates: start: 20210109
  2. CALCIUM [Concomitant]
     Active Substance: CALCIUM
  3. CLOCORTOLONE [Concomitant]
  4. CURCUMIN [Concomitant]
     Active Substance: CURCUMIN
  5. FISH OIL [Concomitant]
     Active Substance: FISH OIL
  6. RESTASIS [Concomitant]
     Active Substance: CYCLOSPORINE
  7. VITAMIN C [Concomitant]
     Active Substance: ASCORBIC ACID
  8. VITAMIN D3 [Concomitant]
     Active Substance: CHOLECALCIFEROL
  9. MENAQUINONE 6 [Concomitant]
     Active Substance: MENAQUINONE 6
  10. MAGNESIUM [Concomitant]
     Active Substance: MAGNESIUM
  11. VITAMINS NOS [Concomitant]
     Active Substance: VITAMINS
  12. DICLOFENAC [Concomitant]
     Active Substance: DICLOFENAC

REACTIONS (5)
  - Sleep disorder due to a general medical condition [Not Recovered/Not Resolved]
  - Skin discomfort [Not Recovered/Not Resolved]
  - Dermatitis atopic [Not Recovered/Not Resolved]
  - Rash [Not Recovered/Not Resolved]
  - Drug ineffective [Not Recovered/Not Resolved]
